FAERS Safety Report 7558014-9 (Version None)
Quarter: 2011Q2

REPORT INFORMATION
  Report Type: 
  Country: None (occurrence: None)
  Receive Date: 20110620
  Receipt Date: 20110609
  Transmission Date: 20111010
  Serious: Yes (Hospitalization)
  Sender: FDA-Public Use
  Company Number: US-US-EMD SERONO, INC.-7064420

PATIENT
  Sex: Male

DRUGS (3)
  1. REBIF [Suspect]
     Indication: PRODUCT USED FOR UNKNOWN INDICATION
     Route: 058
     Dates: start: 20100304, end: 20110401
  2. DILANTIN [Concomitant]
  3. REBIF [Suspect]
     Route: 058

REACTIONS (2)
  - CONVULSION [None]
  - DRUG LEVEL DECREASED [None]
